FAERS Safety Report 22612134 (Version 1)
Quarter: 2023Q2

REPORT INFORMATION
  Report Type: Spontaneous
  Country: ZA (occurrence: ZA)
  Receive Date: 20230617
  Receipt Date: 20230617
  Transmission Date: 20230722
  Serious: Yes (Life-Threatening)
  Sender: FDA-Public Use
  Company Number: ZA-002147023-NVSC2023ZA138403

PATIENT
  Age: 37 Year
  Sex: Male
  Weight: 53.2 kg

DRUGS (6)
  1. CLOFAZIMINE [Suspect]
     Active Substance: CLOFAZIMINE
     Indication: Product used for unknown indication
     Dosage: 300 MG
     Route: 048
     Dates: start: 20230210, end: 20230223
  2. CLOFAZIMINE [Suspect]
     Active Substance: CLOFAZIMINE
     Dosage: 100 MG, QD
     Route: 048
     Dates: start: 20230224, end: 20230531
  3. LINEZOLID [Suspect]
     Active Substance: LINEZOLID
     Indication: Product used for unknown indication
     Dosage: 600 MG, QD
     Route: 048
     Dates: start: 20230210, end: 20230531
  4. DELAMANID [Suspect]
     Active Substance: DELAMANID
     Indication: Product used for unknown indication
     Dosage: 300 MG, QD
     Route: 048
     Dates: start: 20230210, end: 20230531
  5. BEDAQUILINE [Suspect]
     Active Substance: BEDAQUILINE
     Indication: Product used for unknown indication
     Dosage: 200 MG, QD
     Route: 048
     Dates: start: 20230210, end: 20230405
  6. BEDAQUILINE [Suspect]
     Active Substance: BEDAQUILINE
     Dosage: 100 MG, QD
     Route: 048
     Dates: start: 20230406, end: 20230531

REACTIONS (4)
  - Drug-induced liver injury [Recovered/Resolved]
  - Vomiting [Unknown]
  - Nausea [Unknown]
  - Hepatitis A virus test positive [Unknown]

NARRATIVE: CASE EVENT DATE: 20230601
